FAERS Safety Report 5206858-0 (Version None)
Quarter: 2006Q4

REPORT INFORMATION
  Report Type: 
  Country: None (occurrence: None)
  Receive Date: 20061030
  Receipt Date: 20060828
  Transmission Date: 20070319
  Serious: No
  Sender: FDA-Public Use
  Company Number: 256447

PATIENT
  Age: 52 Year
  Sex: Male
  Weight: 79.4 kg

DRUGS (4)
  1. LEVEMIR [Suspect]
     Indication: INSULIN-REQUIRING TYPE II DIABETES MELLITUS
     Dosage: 5 IU, QD, SUBCUTANEOUS; SEE IMAGE
     Route: 058
     Dates: start: 20060725, end: 20060805
  2. LEVEMIR [Suspect]
     Indication: INSULIN-REQUIRING TYPE II DIABETES MELLITUS
     Dosage: 5 IU, QD, SUBCUTANEOUS; SEE IMAGE
     Route: 058
     Dates: start: 20060805, end: 20060824
  3. LEVEMIR [Suspect]
     Indication: INSULIN-REQUIRING TYPE II DIABETES MELLITUS
     Dosage: 5 IU, QD, SUBCUTANEOUS; SEE IMAGE
     Route: 058
     Dates: start: 20060824, end: 20060825
  4. LEVEMIR [Suspect]
     Indication: INSULIN-REQUIRING TYPE II DIABETES MELLITUS
     Dosage: 5 IU, QD, SUBCUTANEOUS; SEE IMAGE
     Route: 058
     Dates: start: 20060825, end: 20060826

REACTIONS (4)
  - FLUID RETENTION [None]
  - HEADACHE [None]
  - INJECTION SITE BRUISING [None]
  - URTICARIA [None]
